FAERS Safety Report 17617999 (Version 1)
Quarter: 2020Q2

REPORT INFORMATION
  Report Type: Report from Study
  Country: NL (occurrence: NL)
  Receive Date: 20200402
  Receipt Date: 20200402
  Transmission Date: 20200713
  Serious: Yes (Other)
  Sender: FDA-Public Use
  Company Number: NL-UCBSA-2020013183

PATIENT

DRUGS (1)
  1. BRIVARACETAM [Suspect]
     Active Substance: BRIVARACETAM
     Indication: EPILEPSY
     Dosage: UNKNOWN DOSE

REACTIONS (8)
  - Somnolence [Unknown]
  - Fatigue [Unknown]
  - Headache [Unknown]
  - Seizure [Unknown]
  - Dizziness [Unknown]
  - Depressed mood [Unknown]
  - Aggression [Unknown]
  - Drug ineffective [Unknown]
